FAERS Safety Report 8119905-3 (Version None)
Quarter: 2012Q1

REPORT INFORMATION
  Report Type: 
  Country: None (occurrence: None)
  Receive Date: 20120207
  Receipt Date: 20120129
  Transmission Date: 20120608
  Serious: Yes (Hospitalization)
  Sender: FDA-Public Use
  Company Number: CN-ELI_LILLY_AND_COMPANY-CN201201005742

PATIENT
  Age: 65 Year
  Sex: Male

DRUGS (2)
  1. HUMALOG [Concomitant]
     Dosage: 10 UG, UNKNOWN
  2. BYETTA [Suspect]
     Dosage: UNK, UNKNOWN
     Route: 058

REACTIONS (5)
  - VOMITING [None]
  - NAUSEA [None]
  - COMA [None]
  - OFF LABEL USE [None]
  - RENAL FAILURE [None]
